FAERS Safety Report 18537456 (Version 1)
Quarter: 2020Q4

REPORT INFORMATION
  Report Type: Spontaneous
  Country: US (occurrence: US)
  Receive Date: 20201123
  Receipt Date: 20201123
  Transmission Date: 20210114
  Serious: No
  Sender: FDA-Public Use
  Company Number: US-PERRIGO-20US009979

PATIENT
  Sex: Female

DRUGS (2)
  1. POLYETHYLENE GLYCOL 3350. [Suspect]
     Active Substance: POLYETHYLENE GLYCOL 3350
     Indication: PRODUCT USED FOR UNKNOWN INDICATION
     Dosage: 15 G, UNKNOWN
     Route: 048
     Dates: start: 202007
  2. POLYETHYLENE GLYCOL 3350. [Suspect]
     Active Substance: POLYETHYLENE GLYCOL 3350
     Dosage: 8 G, UNKNOWN
     Route: 048
     Dates: start: 202007, end: 202007

REACTIONS (3)
  - Wrong technique in product usage process [Unknown]
  - Faeces soft [Unknown]
  - Underdose [Unknown]

NARRATIVE: CASE EVENT DATE: 202007
